FAERS Safety Report 6537472-2 (Version None)
Quarter: 2010Q1

REPORT INFORMATION
  Report Type: 
  Country: None (occurrence: None)
  Receive Date: 20100114
  Receipt Date: 20100105
  Transmission Date: 20100710
  Serious: Yes (Other)
  Sender: FDA-Public Use
  Company Number: US-JNJFOC-20100101490

PATIENT
  Sex: Female
  Weight: 56.7 kg

DRUGS (6)
  1. SIMPONI [Suspect]
     Route: 058
  2. SIMPONI [Suspect]
     Route: 058
  3. SIMPONI [Suspect]
     Indication: RHEUMATOID ARTHRITIS
     Route: 058
  4. PREDNISONE [Concomitant]
     Indication: RHEUMATOID ARTHRITIS
     Route: 048
  5. TOPROL-XL [Concomitant]
     Indication: BLOOD PRESSURE
  6. TOPROL-XL [Concomitant]
     Indication: CARDIAC DISORDER

REACTIONS (5)
  - ATRIAL FIBRILLATION [None]
  - DEVICE MALFUNCTION [None]
  - INAPPROPRIATE SCHEDULE OF DRUG ADMINISTRATION [None]
  - INJECTION SITE ERYTHEMA [None]
  - VOMITING [None]
